FAERS Safety Report 7637797 (Version 3)
Quarter: 2013Q2

REPORT INFORMATION
  Report Type: Spontaneous
  Country: US (occurrence: US)
  Receive Date: 20101022
  Receipt Date: 20130402
  Transmission Date: 20140414
  Serious: Yes (Hospitalization)
  Sender: FDA-Public Use
  Company Number: US-BAYER-201037771NA

PATIENT
  Age: 37 Year
  Sex: Female
  Weight: 102 kg

DRUGS (5)
  1. YAZ [Suspect]
     Indication: PREMENSTRUAL SYNDROME
     Dosage: UNK
     Route: 048
     Dates: start: 200710, end: 200807
  2. ASPIRIN [Concomitant]
  3. PRILOSEC [Concomitant]
  4. ASA [Concomitant]
     Indication: PRODUCT USED FOR UNKNOWN INDICATION
     Dosage: UNK
     Dates: start: 20090803
  5. LORTAB 5/500 [Concomitant]
     Indication: PRODUCT USED FOR UNKNOWN INDICATION
     Dosage: UNK
     Dates: start: 20090803

REACTIONS (10)
  - Cholelithiasis [Unknown]
  - Pain [Unknown]
  - Abdominal pain upper [Unknown]
  - Gallbladder disorder [None]
  - Cholecystitis [None]
  - Cholesterosis [None]
  - Injury [None]
  - Pain [None]
  - General physical health deterioration [None]
  - Emotional distress [None]
